FAERS Safety Report 21556434 (Version 1)
Quarter: 2022Q4

REPORT INFORMATION
  Report Type: Report from Study
  Country: AR (occurrence: AR)
  Receive Date: 20221104
  Receipt Date: 20221104
  Transmission Date: 20230112
  Serious: Yes (Hospitalization)
  Sender: FDA-Public Use
  Company Number: AR-Merck Healthcare KGaA-9360966

PATIENT
  Age: 73 Year
  Sex: Male

DRUGS (1)
  1. CETUXIMAB [Suspect]
     Active Substance: CETUXIMAB
     Indication: Head and neck cancer
     Dosage: 438 MG, 2/M
     Route: 065
     Dates: start: 20200701

REACTIONS (3)
  - General physical health deterioration [Not Recovered/Not Resolved]
  - Decreased appetite [Not Recovered/Not Resolved]
  - Off label use [Unknown]

NARRATIVE: CASE EVENT DATE: 20221024
